FAERS Safety Report 9237900 (Version 2)
Quarter: 2013Q2

REPORT INFORMATION
  Report Type: Spontaneous
  Country: DE (occurrence: DE)
  Receive Date: 20130418
  Receipt Date: 20130513
  Transmission Date: 20140414
  Serious: Yes (Hospitalization)
  Sender: FDA-Public Use
  Company Number: DE-009507513-1304DEU007212

PATIENT
  Age: 71 Year
  Sex: Male
  Weight: 75 kg

DRUGS (3)
  1. MIRTAZAPIN STADA [Suspect]
     Indication: DEPRESSION
     Dosage: 15 MG, UNK
     Route: 048
     Dates: start: 20120928, end: 20121009
  2. MIRTAZAPIN STADA [Suspect]
     Indication: SLEEP DISORDER
     Dosage: 30 MG, UNK
     Route: 048
     Dates: start: 20121010, end: 20121016
  3. VENLAFAXINE HYDROCHLORIDE [Suspect]
     Indication: DEPRESSION
     Dosage: 150 MG
     Route: 048
     Dates: start: 201202, end: 20121016

REACTIONS (1)
  - Nightmare [Recovered/Resolved]
